FAERS Safety Report 6908467-1 (Version None)
Quarter: 2010Q3

REPORT INFORMATION
  Report Type: 
  Country: None (occurrence: None)
  Receive Date: 20100805
  Receipt Date: 20100727
  Transmission Date: 20110219
  Serious: Yes (Hospitalization)
  Sender: FDA-Public Use
  Company Number: FR-PFIZER INC-2010077461

PATIENT
  Age: 79 Year
  Sex: Female
  Weight: 78 kg

DRUGS (12)
  1. ZYVOX [Suspect]
     Indication: STAPHYLOCOCCAL SEPSIS
     Dosage: 600 MG, 2X/DAY
     Route: 048
     Dates: start: 20100503, end: 20100513
  2. PRAVASTATIN [Concomitant]
  3. CORDARONE [Concomitant]
  4. ALDACTONE [Concomitant]
  5. BISOPROLOL FUMARATE [Concomitant]
  6. LASIX [Concomitant]
  7. PERINDOPRIL ERBUMINE [Concomitant]
  8. LEVOTHYROXINE SODIUM [Concomitant]
  9. AUGMENTIN '125' [Concomitant]
     Dosage: 1 G, 2X/DAY
  10. CIFLOX [Concomitant]
     Dosage: 200 MG PER DAY
     Dates: start: 20100420, end: 20100503
  11. NETILMICIN [Concomitant]
     Dosage: 300 MG
     Dates: start: 20100422, end: 20100422
  12. NETILMICIN [Concomitant]
     Dosage: 300 MG
     Dates: start: 20100425, end: 20100425

REACTIONS (5)
  - ANAEMIA [None]
  - CYTOLYTIC HEPATITIS [None]
  - LEUKOPENIA [None]
  - PANCYTOPENIA [None]
  - THROMBOCYTOPENIA [None]
